FAERS Safety Report 5636448-7 (Version None)
Quarter: 2008Q1

REPORT INFORMATION
  Report Type: 
  Country: None (occurrence: None)
  Receive Date: 20080220
  Receipt Date: 20080213
  Transmission Date: 20080703
  Serious: Yes (Hospitalization)
  Sender: FDA-Public Use
  Company Number: 2008SP003393

PATIENT
  Age: 75 Year
  Sex: Female

DRUGS (5)
  1. TEMOZOLOMIDE [Suspect]
     Indication: GLIOBLASTOMA MULTIFORME
     Dosage: 140 MG; QD; PO; 270 MG; QD; PO
     Route: 048
     Dates: start: 20060612, end: 20060810
  2. TEMOZOLOMIDE [Suspect]
     Indication: GLIOBLASTOMA MULTIFORME
     Dosage: 140 MG; QD; PO; 270 MG; QD; PO
     Route: 048
     Dates: start: 20061027
  3. PHENYTOIN [Suspect]
     Indication: GLIOBLASTOMA MULTIFORME
     Dosage: 400 MG; QD; PO
     Route: 048
     Dates: start: 20060101, end: 20061004
  4. LAMOTRIGINE [Suspect]
     Indication: GLIOBLASTOMA MULTIFORME
     Dosage: 100 MG; TID; PO
     Route: 048
     Dates: start: 20061004
  5. LEVETIRACETAM [Suspect]
     Indication: GLIOBLASTOMA MULTIFORME
     Dosage: 500 MG; QD; PO
     Route: 048
     Dates: start: 20061027

REACTIONS (2)
  - FEBRILE NEUTROPENIA [None]
  - THROMBOCYTOPENIA [None]
